FAERS Safety Report 17953025 (Version 1)
Quarter: 2020Q2

REPORT INFORMATION
  Report Type: Spontaneous
  Country: NL (occurrence: NL)
  Receive Date: 20200627
  Receipt Date: 20200627
  Transmission Date: 20200714
  Serious: Yes (Hospitalization, Disabling)
  Sender: FDA-Public Use
  Company Number: NL-ASTRAZENECA-2020SE79385

PATIENT
  Age: 73 Year
  Sex: Female
  Weight: 60 kg

DRUGS (5)
  1. CLOPIDOGREL [Concomitant]
     Active Substance: CLOPIDOGREL BISULFATE
     Dosage: TABLET, 75 MG (MILLIGRAM)
  2. PARACETAMOL [Concomitant]
     Active Substance: ACETAMINOPHEN
     Dosage: CAPSULE, 500 MG (MILLIGRAM)
  3. IMFINZI [Suspect]
     Active Substance: DURVALUMAB
     Indication: LUNG CANCER METASTATIC
     Route: 042
     Dates: start: 20190206, end: 20200108
  4. PANTOZOL [Concomitant]
     Active Substance: PANTOPRAZOLE SODIUM
     Dosage: MAAGSAPRESISTENTE TABLET, 40 MG (MILLIGRAM)
  5. BERODUAL [Concomitant]
     Active Substance: FENOTEROL HYDROBROMIDE\IPRATROPIUM BROMIDE
     Dosage: AEROSOL, 50/20 ??G/DOSIS (MICROGRAM PER DOSIS)

REACTIONS (1)
  - Necrosis ischaemic [Not Recovered/Not Resolved]

NARRATIVE: CASE EVENT DATE: 20200201
